FAERS Safety Report 21895821 (Version 2)
Quarter: 2023Q1

REPORT INFORMATION
  Report Type: Spontaneous
  Country: DE (occurrence: DE)
  Receive Date: 20230123
  Receipt Date: 20230126
  Transmission Date: 20230418
  Serious: Yes (Other)
  Sender: FDA-Public Use
  Company Number: DE-CADRBFARM-2023313108

PATIENT
  Age: 84 Year
  Sex: Male
  Weight: 60 kg

DRUGS (2)
  1. IBUPROFEN [Suspect]
     Active Substance: IBUPROFEN
     Indication: Pain
     Dosage: UNK (UNCLEAR OWN INCOME)
     Route: 065
     Dates: start: 20220913, end: 20221007
  2. XARELTO [Suspect]
     Active Substance: RIVAROXABAN
     Indication: Atrial fibrillation
     Dosage: 15 MILLIGRAM
     Route: 048
     Dates: start: 20190709, end: 20221007

REACTIONS (2)
  - Gastritis erosive [Unknown]
  - Haemoglobin decreased [Recovered/Resolved]

NARRATIVE: CASE EVENT DATE: 20221006
